FAERS Safety Report 5762096-4 (Version None)
Quarter: 2008Q2

REPORT INFORMATION
  Report Type: 
  Country: None (occurrence: None)
  Receive Date: 20080604
  Receipt Date: 20080526
  Transmission Date: 20081010
  Serious: Yes (Hospitalization, Disabling)
  Sender: FDA-Public Use
  Company Number: 056-21880-08051500

PATIENT
  Age: 74 Year
  Sex: Female

DRUGS (2)
  1. REVLIMID [Suspect]
     Indication: MULTIPLE MYELOMA
     Dates: start: 20071218, end: 20080206
  2. VELCADE [Concomitant]

REACTIONS (8)
  - CARDIOPULMONARY FAILURE [None]
  - DIAPHRAGMATIC DISORDER [None]
  - HYPERCALCAEMIA OF MALIGNANCY [None]
  - NEUROPATHY PERIPHERAL [None]
  - NEUTROPENIA [None]
  - PULMONARY OEDEMA [None]
  - THROMBOCYTOPENIA [None]
  - WOUND [None]
